FAERS Safety Report 5521904-2 (Version None)
Quarter: 2007Q4

REPORT INFORMATION
  Report Type: 
  Country: None (occurrence: None)
  Receive Date: 20071120
  Receipt Date: 20071114
  Transmission Date: 20080405
  Serious: Yes (Other)
  Sender: FDA-Public Use
  Company Number: GB-BAYER-200716900GDS

PATIENT
  Age: 79 Year
  Sex: Female

DRUGS (1)
  1. ASPIRIN [Suspect]
     Indication: DRUG USE FOR UNKNOWN INDICATION
     Route: 065

REACTIONS (5)
  - OBSTRUCTION GASTRIC [None]
  - OESOPHAGITIS [None]
  - PEPTIC ULCER [None]
  - VOMITING [None]
  - WEIGHT DECREASED [None]
